FAERS Safety Report 17960785 (Version 1)
Quarter: 2020Q2

REPORT INFORMATION
  Report Type: Spontaneous
  Country: TH (occurrence: TH)
  Receive Date: 20200630
  Receipt Date: 20200630
  Transmission Date: 20200714
  Serious: Yes (Death, Hospitalization, Other)
  Sender: FDA-Public Use
  Company Number: NVSC2020TH182057

PATIENT
  Age: 58 Year
  Sex: Male

DRUGS (2)
  1. TAFINLAR [Suspect]
     Active Substance: DABRAFENIB MESYLATE
     Indication: METASTATIC MALIGNANT MELANOMA
     Dosage: UNK
     Route: 065
     Dates: start: 20190412
  2. MEKINIST [Suspect]
     Active Substance: TRAMETINIB DIMETHYL SULFOXIDE
     Indication: METASTATIC MALIGNANT MELANOMA
     Dosage: UNK
     Route: 065
     Dates: start: 20190412

REACTIONS (20)
  - Lymphadenopathy [Unknown]
  - Death [Fatal]
  - Hydrocephalus [Unknown]
  - Brain herniation [Unknown]
  - Brain oedema [Unknown]
  - Cerebral haemorrhage [Unknown]
  - Loss of consciousness [Unknown]
  - Vomiting [Not Recovered/Not Resolved]
  - Subarachnoid haemorrhage [Unknown]
  - Metastases to liver [Unknown]
  - Nausea [Not Recovered/Not Resolved]
  - Rash [Recovering/Resolving]
  - Pneumonitis [Unknown]
  - Neuropathy peripheral [Unknown]
  - Fatigue [Not Recovered/Not Resolved]
  - Metastases to lymph nodes [Unknown]
  - Pyrexia [Unknown]
  - Headache [Unknown]
  - Vision blurred [Unknown]
  - Dysphagia [Unknown]

NARRATIVE: CASE EVENT DATE: 201912
